FAERS Safety Report 6190118-8 (Version None)
Quarter: 2009Q2

REPORT INFORMATION
  Report Type: 
  Country: None (occurrence: None)
  Receive Date: 20090513
  Receipt Date: 20090513
  Transmission Date: 20091009
  Serious: Yes (Hospitalization)
  Sender: FDA-Public Use
  Company Number: None

PATIENT
  Sex: Female
  Weight: 66.1 kg

DRUGS (10)
  1. ERLOTINIB [Suspect]
     Indication: NON-SMALL CELL LUNG CANCER
     Dosage: 150MG PO EVERY DAY
     Route: 048
     Dates: start: 20080826, end: 20090511
  2. DASATINIB [Suspect]
     Indication: NON-SMALL CELL LUNG CANCER
     Dosage: 70MG PO BID
     Route: 048
     Dates: start: 20080902, end: 20090511
  3. COMBIVENT [Concomitant]
  4. ATIVAN [Concomitant]
  5. CARDIAZEM [Concomitant]
  6. LASIX [Concomitant]
  7. ALBUTEROL [Concomitant]
  8. SINGULAIR [Concomitant]
  9. METHIMAZOLE [Concomitant]
  10. MULTI-VITAMINS [Concomitant]

REACTIONS (2)
  - BRONCHITIS [None]
  - PNEUMONIA [None]
